FAERS Safety Report 11908191 (Version 5)
Quarter: 2016Q1

REPORT INFORMATION
  Report Type: Report from Study
  Country: BR (occurrence: BR)
  Receive Date: 20160111
  Receipt Date: 20160308
  Transmission Date: 20160526
  Serious: Yes (Other)
  Sender: FDA-Public Use
  Company Number: PHHY2015BR065339

PATIENT
  Sex: Male
  Weight: 64 kg

DRUGS (3)
  1. CABERGOLINE. [Concomitant]
     Active Substance: CABERGOLINE
     Indication: PRODUCT USED FOR UNKNOWN INDICATION
     Dosage: 1 DF, ON MONDAY, WEDNESDAY AND FRIDAY
     Route: 048
     Dates: start: 2009
  2. PURAN [Concomitant]
     Active Substance: LEVOTHYROXINE SODIUM
     Indication: HYPOTHYROIDISM
     Dosage: 1 DF, QD
     Route: 048
     Dates: start: 2009
  3. SANDOSTATIN LAR DEPOT [Suspect]
     Active Substance: OCTREOTIDE ACETATE
     Indication: ACROMEGALY
     Dosage: 30 MG, QMO
     Route: 030
     Dates: start: 201012

REACTIONS (5)
  - Weight decreased [Recovering/Resolving]
  - Sleep disorder [Unknown]
  - Tongue pruritus [Recovering/Resolving]
  - Glossodynia [Recovering/Resolving]
  - Tongue neoplasm [Unknown]
